FAERS Safety Report 15531531 (Version 1)
Quarter: 2018Q4

REPORT INFORMATION
  Report Type: Spontaneous
  Country: BE (occurrence: BE)
  Receive Date: 20181019
  Receipt Date: 20181019
  Transmission Date: 20190205
  Serious: Yes (Hospitalization, Other)
  Sender: FDA-Public Use
  Company Number: BE-ACCORD-073438

PATIENT
  Age: 46 Year
  Sex: Female

DRUGS (4)
  1. DOXORUBICIN [Suspect]
     Active Substance: DOXORUBICIN
     Indication: NEOPLASM OF APPENDIX
     Route: 033
     Dates: start: 201001, end: 201001
  2. FLUOROURACIL. [Concomitant]
     Active Substance: FLUOROURACIL
     Indication: NEOPLASM OF APPENDIX
     Dosage: 800 MG/M2
     Route: 042
     Dates: start: 201001, end: 201001
  3. FOLINIC ACID [Concomitant]
     Active Substance: LEUCOVORIN
     Indication: NEOPLASM OF APPENDIX
     Dosage: 20 MG/M2
     Route: 042
     Dates: start: 201001, end: 201001
  4. MITOMYCIN. [Suspect]
     Active Substance: MITOMYCIN
     Indication: NEOPLASM OF APPENDIX
     Route: 033
     Dates: start: 201001, end: 201001

REACTIONS (2)
  - Encapsulating peritoneal sclerosis [Recovered/Resolved]
  - Off label use [Unknown]
